FAERS Safety Report 20693911 (Version 6)
Quarter: 2024Q1

REPORT INFORMATION
  Report Type: Spontaneous
  Country: US (occurrence: US)
  Receive Date: 20220411
  Receipt Date: 20240229
  Transmission Date: 20240410
  Serious: No
  Sender: FDA-Public Use
  Company Number: US-DSJP-DSU-2022-112349AA

PATIENT
  Age: 80 Year
  Sex: Female

DRUGS (9)
  1. TURALIO [Suspect]
     Active Substance: PEXIDARTINIB HYDROCHLORIDE
     Indication: Giant cell tumour of tendon sheath
     Dosage: 200 MG IN THE MORNING AND 400 MG IN THE EVENING
     Route: 048
     Dates: start: 20220106
  2. TURALIO [Suspect]
     Active Substance: PEXIDARTINIB HYDROCHLORIDE
     Indication: Giant cell tumour of tendon sheath
     Dosage: 200 MG IN THE MORNING, QD
     Route: 048
     Dates: start: 20220405
  3. TURALIO [Suspect]
     Active Substance: PEXIDARTINIB HYDROCHLORIDE
     Indication: Synovitis
     Dosage: 200 MG NIGHTLY, QD
     Route: 048
  4. TURALIO [Suspect]
     Active Substance: PEXIDARTINIB HYDROCHLORIDE
     Dosage: 125 MG, QD
     Route: 065
  5. TURALIO [Suspect]
     Active Substance: PEXIDARTINIB HYDROCHLORIDE
     Dosage: 125 MG, BID
     Route: 065
     Dates: start: 20230405
  6. TURALIO [Suspect]
     Active Substance: PEXIDARTINIB HYDROCHLORIDE
     Dosage: 125 MG, BID
     Route: 065
  7. TURALIO [Suspect]
     Active Substance: PEXIDARTINIB HYDROCHLORIDE
     Dosage: 125 MG, ONCE IN THE MORNING AND ALTERNATING BETWEEN 1 AND 2 IN THE EVENING
     Route: 065
  8. TURALIO [Suspect]
     Active Substance: PEXIDARTINIB HYDROCHLORIDE
     Dosage: 125 MG, TID
     Route: 065
     Dates: start: 20231220
  9. TURALIO [Suspect]
     Active Substance: PEXIDARTINIB HYDROCHLORIDE
     Dosage: (1 CAPSULE EVERY OTHER DAY AND 2 CAPSULES EVERY OTHER DAY)
     Route: 065
     Dates: start: 20240226

REACTIONS (6)
  - Therapy change [Unknown]
  - Inappropriate schedule of product administration [Unknown]
  - Incorrect dose administered [Unknown]
  - Product dose omission issue [Unknown]
  - Incorrect dose administered [Unknown]
  - Off label use [Not Recovered/Not Resolved]

NARRATIVE: CASE EVENT DATE: 20220106
